FAERS Safety Report 9469377 (Version 2)
Quarter: 2013Q3

REPORT INFORMATION
  Report Type: Spontaneous
  Country: DK (occurrence: SE)
  Receive Date: 20130821
  Receipt Date: 20130905
  Transmission Date: 20140515
  Serious: Yes (Hospitalization)
  Sender: FDA-Public Use
  Company Number: SE-FRI-1000047980

PATIENT
  Age: 27 Year
  Sex: Female

DRUGS (4)
  1. ESCITALOPRAM [Suspect]
  2. SEROQUEL [Concomitant]
  3. TEMESTA [Concomitant]
  4. ERGENYL [Concomitant]

REACTIONS (2)
  - Convulsion [Recovered/Resolved]
  - Loss of consciousness [Recovered/Resolved]
